FAERS Safety Report 23545004 (Version 1)
Quarter: 2024Q1

REPORT INFORMATION
  Report Type: Spontaneous
  Country: US (occurrence: None)
  Receive Date: 20240218
  Receipt Date: 20240218
  Transmission Date: 20240410
  Serious: Yes (Death)
  Sender: FDA-Public Use
  Company Number: None

PATIENT
  Age: 14 Year
  Sex: Male
  Weight: 39.6 kg

DRUGS (1)
  1. ESCITALOPRAM [Suspect]
     Active Substance: ESCITALOPRAM OXALATE
     Indication: Autism spectrum disorder
     Dates: start: 20230307, end: 20231015

REACTIONS (4)
  - Drug level increased [None]
  - Asphyxia [None]
  - Completed suicide [None]
  - Therapy change [None]

NARRATIVE: CASE EVENT DATE: 20231015
